FAERS Safety Report 24591982 (Version 1)
Quarter: 2024Q4

REPORT INFORMATION
  Report Type: Spontaneous
  Country: IT (occurrence: IT)
  Receive Date: 20241108
  Receipt Date: 20241108
  Transmission Date: 20250114
  Serious: Yes (Life-Threatening, Other)
  Sender: UNITED THERAPEUTICS
  Company Number: IT-UNITED THERAPEUTICS-UNT-2024-035250

PATIENT
  Age: 58 Year

DRUGS (5)
  1. REMODULIN [Suspect]
     Active Substance: TREPROSTINIL
     Indication: Pulmonary arterial hypertension
     Dosage: UNK, CONTINUING
  2. MILRINONE [Suspect]
     Active Substance: MILRINONE
     Indication: Pulmonary arterial hypertension
     Dosage: UNK
  3. EPOPROSTENOL [Suspect]
     Active Substance: EPOPROSTENOL
     Indication: Pulmonary arterial hypertension
     Dosage: UNK
  4. NITRIC OXIDE [Suspect]
     Active Substance: NITRIC OXIDE
     Indication: Pulmonary arterial hypertension
     Dosage: UNK
  5. EPINEPHRINE [Concomitant]
     Active Substance: EPINEPHRINE
     Indication: Haemodynamic instability
     Dosage: UNK

REACTIONS (4)
  - Cardiopulmonary failure [Recovered/Resolved]
  - Congestive hepatopathy [Unknown]
  - Harlequin syndrome [Unknown]
  - Therapy non-responder [Unknown]
